FAERS Safety Report 5473662-8 (Version None)
Quarter: 2007Q4

REPORT INFORMATION
  Report Type: 
  Country: None (occurrence: None)
  Receive Date: 20071001
  Receipt Date: 20070919
  Transmission Date: 20080405
  Serious: No
  Sender: FDA-Public Use
  Company Number: US-BOEHRINGER INGELHEIM PHARMACEUTICALS, INC.-2007-BP-21309BP

PATIENT
  Age: 83 Year
  Sex: Female

DRUGS (5)
  1. ZANTAC 75 [Suspect]
     Indication: THERMAL BURN
     Route: 048
     Dates: start: 20070914, end: 20070919
  2. CORGARD [Concomitant]
     Indication: HYPERTENSION
  3. NORVASC [Concomitant]
     Indication: HYPERTENSION
  4. ASPIRIN [Concomitant]
  5. CELEXA [Concomitant]
     Indication: ANTIDEPRESSANT THERAPY

REACTIONS (1)
  - DIARRHOEA [None]
